FAERS Safety Report 12894890 (Version 1)
Quarter: 2016Q4

REPORT INFORMATION
  Report Type: Spontaneous
  Country: BR (occurrence: BR)
  Receive Date: 20161028
  Receipt Date: 20161028
  Transmission Date: 20170207
  Serious: Yes (Other)
  Sender: FDA-Public Use
  Company Number: BR-BIOMARINAP-BR-2016-111616

PATIENT
  Age: 12 Year
  Sex: Male
  Weight: 20 kg

DRUGS (3)
  1. NAGLAZYME [Suspect]
     Active Substance: GALSULFASE
     Indication: MUCOPOLYSACCHARIDOSIS VI
     Dosage: QW
     Route: 042
     Dates: start: 20090601
  2. AMOXICILLIN. [Concomitant]
     Active Substance: AMOXICILLIN
     Indication: INFLUENZA
  3. DIPYRONE [Concomitant]
     Active Substance: DIPYRONE
     Indication: INFLUENZA

REACTIONS (2)
  - Blindness [Unknown]
  - Headache [Unknown]

NARRATIVE: CASE EVENT DATE: 201610
